FAERS Safety Report 18926532 (Version 2)
Quarter: 2025Q2

REPORT INFORMATION
  Report Type: Report from Study
  Country: US (occurrence: US)
  Receive Date: 20210223
  Receipt Date: 20250512
  Transmission Date: 20250717
  Serious: Yes (Hospitalization, Other)
  Sender: TAKEDA
  Company Number: US-TAKEDA-2018TUS009259

PATIENT
  Age: 62 Year
  Sex: Female

DRUGS (7)
  1. PONATINIB [Suspect]
     Active Substance: PONATINIB
     Indication: Chronic myeloid leukaemia (in remission)
     Dosage: 15 MILLIGRAM, QD
     Dates: start: 201402
  2. PONATINIB [Suspect]
     Active Substance: PONATINIB
  3. LISINOPRIL [Concomitant]
     Active Substance: LISINOPRIL
  4. FUROSEMIDE [Concomitant]
     Active Substance: FUROSEMIDE
  5. ALLOPURINOL [Concomitant]
     Active Substance: ALLOPURINOL
  6. LABETALOL [Concomitant]
     Active Substance: LABETALOL
  7. ZITHROMAX [Concomitant]
     Active Substance: AZITHROMYCIN DIHYDRATE

REACTIONS (11)
  - Blood pressure increased [Recovered/Resolved]
  - Fatigue [Unknown]
  - Dyspnoea [Unknown]
  - Anxiety [Unknown]
  - Infection [Recovered/Resolved]
  - Back pain [Unknown]
  - Cardiac murmur [Recovered/Resolved]
  - Product use issue [Recovered/Resolved]
  - Product dose omission issue [Unknown]
  - Sciatica [Unknown]
  - Arthralgia [Unknown]

NARRATIVE: CASE EVENT DATE: 20180924
